FAERS Safety Report 6841175-4 (Version None)
Quarter: 2010Q3

REPORT INFORMATION
  Report Type: 
  Country: None (occurrence: None)
  Receive Date: 20100714
  Receipt Date: 20100702
  Transmission Date: 20110219
  Serious: Yes (Other)
  Sender: FDA-Public Use
  Company Number: GB-NICOBRDEVP-2010-08821

PATIENT
  Age: 59 Year
  Sex: Male
  Weight: 75 kg

DRUGS (1)
  1. KENTERA (WATSON LABORATORIES) [Suspect]
     Indication: URINARY RETENTION
     Dosage: 3.9 MG ^1/2 HOURS^
     Route: 062
     Dates: start: 20100417, end: 20100527

REACTIONS (5)
  - DISCOMFORT [None]
  - ERYTHEMA [None]
  - PAIN [None]
  - PRURITUS [None]
  - RASH [None]
